FAERS Safety Report 8252318-2 (Version None)
Quarter: 2012Q2

REPORT INFORMATION
  Report Type: 
  Country: None (occurrence: None)
  Receive Date: 20120402
  Receipt Date: 20110817
  Transmission Date: 20120825
  Serious: No
  Sender: FDA-Public Use
  Company Number: US-ABBOTT-11P-163-0804534-00

PATIENT
  Sex: Male
  Weight: 84.898 kg

DRUGS (10)
  1. ANDROGEL [Suspect]
     Dosage: DAILY FOR 4 DAYS PER WEEK
     Route: 061
  2. ANDROGEL [Suspect]
  3. ANDROGEL [Suspect]
     Route: 061
  4. ANDROGEL [Suspect]
     Indication: BLOOD TESTOSTERONE DECREASED
     Dosage: DAILY DOSE: 1.25 GRAM(S)
     Route: 062
  5. ANDROGEL [Suspect]
     Dosage: DAILY DOSE: 2.5 GRAM(S), TWO PUMPS DAILY
     Route: 061
  6. DOXYCYCLINE [Concomitant]
     Indication: ROSACEA
  7. NEXIUM [Concomitant]
     Indication: GASTROOESOPHAGEAL REFLUX DISEASE
  8. FISH OIL [Concomitant]
     Indication: PRODUCT USED FOR UNKNOWN INDICATION
  9. MULTI-VITAMIN [Concomitant]
     Indication: PRODUCT USED FOR UNKNOWN INDICATION
  10. NITRIC OXIDE [Concomitant]
     Indication: PRODUCT USED FOR UNKNOWN INDICATION

REACTIONS (4)
  - WEIGHT LOSS POOR [None]
  - DRUG INEFFECTIVE [None]
  - ASTHENIA [None]
  - MUSCLE DISORDER [None]
